FAERS Safety Report 22098722 (Version 1)
Quarter: 2023Q1

REPORT INFORMATION
  Report Type: Spontaneous
  Country: PL (occurrence: PL)
  Receive Date: 20230315
  Receipt Date: 20230315
  Transmission Date: 20230417
  Serious: Yes (Other)
  Sender: FDA-Public Use
  Company Number: PL-002147023-NVSC2023PL056832

PATIENT
  Age: 39 Year
  Sex: Female

DRUGS (2)
  1. RIBOCICLIB [Suspect]
     Active Substance: RIBOCICLIB
     Indication: Breast cancer
     Dosage: UNK
     Route: 065
     Dates: start: 202202
  2. FULVESTRANT [Suspect]
     Active Substance: FULVESTRANT
     Indication: Product used for unknown indication
     Dosage: UNK
     Route: 065
     Dates: start: 202211

REACTIONS (11)
  - Neutropenia [Unknown]
  - Anaemia [Not Recovered/Not Resolved]
  - Pancytopenia [Not Recovered/Not Resolved]
  - Metastases to bone marrow [Unknown]
  - Extravasation [Unknown]
  - Taste disorder [Unknown]
  - Stomatitis [Unknown]
  - General physical health deterioration [Unknown]
  - Asthenia [Unknown]
  - Pallor [Unknown]
  - Diarrhoea [Unknown]

NARRATIVE: CASE EVENT DATE: 20220501
